FAERS Safety Report 12791668 (Version 1)
Quarter: 2016Q3

REPORT INFORMATION
  Report Type: Report from Study
  Country: CN (occurrence: CN)
  Receive Date: 20160929
  Receipt Date: 20160929
  Transmission Date: 20161109
  Serious: Yes (Other)
  Sender: FDA-Public Use
  Company Number: CN-ROCHE-1834883

PATIENT
  Sex: Male
  Weight: 65 kg

DRUGS (1)
  1. AVASTIN [Suspect]
     Active Substance: BEVACIZUMAB
     Indication: RECTAL ADENOCARCINOMA
     Route: 041
     Dates: start: 20150526

REACTIONS (4)
  - Movement disorder [Unknown]
  - Ill-defined disorder [Unknown]
  - Post procedural haemorrhage [Unknown]
  - Haemorrhage [Unknown]
